FAERS Safety Report 8586741 (Version 3)
Quarter: 2014Q1

REPORT INFORMATION
  Report Type: Spontaneous
  Country: US (occurrence: None)
  Receive Date: 20120323
  Receipt Date: 20140306
  Transmission Date: 20141002
  Serious: Yes (Hospitalization)
  Sender: FDA-Public Use
  Company Number: 163-21880-11051352

PATIENT
  Age: 69 Year
  Sex: Female

DRUGS (10)
  1. REVLIMID [Suspect]
     Indication: PLASMA CELL MYELOMA
     Dosage: 25 MG, DAILY FOR 21 DAYS, OFF 1 WEEK, PO
     Route: 048
     Dates: start: 20110416
  2. COUMADIN [Concomitant]
  3. DECADRON [Concomitant]
  4. ASPIRIN (ACETYLSALICYLIC ACID) [Concomitant]
  5. VITAMIN D (ERGOCALCIFEROL) [Concomitant]
  6. ACYCLOVIR (ACICLOVIR) [Concomitant]
  7. DICYCLOMINE (DICYCLOVERINE HYDROCHLORIDE) [Concomitant]
  8. BACTRIM (BACTRIM) [Concomitant]
  9. CALCIUM 600 + VIT D (CALCIUM D3 ^STADA^ ) [Concomitant]
  10. MULTIVITAMIN (MULTIVITAMINS) [Concomitant]

REACTIONS (1)
  - Deep vein thrombosis [None]
